FAERS Safety Report 5585582-9 (Version None)
Quarter: 2008Q1

REPORT INFORMATION
  Report Type: 
  Country: None (occurrence: None)
  Receive Date: 20080109
  Receipt Date: 20080103
  Transmission Date: 20080703
  Serious: Yes (Disabling)
  Sender: FDA-Public Use
  Company Number: B0479349A

PATIENT
  Age: 43 Year
  Sex: Male
  Weight: 82 kg

DRUGS (2)
  1. AVANDIA [Suspect]
     Dosage: 8MG PER DAY
     Route: 048
     Dates: start: 20030101, end: 20070601
  2. GLUCOPHAGE [Concomitant]
     Route: 065
     Dates: start: 20020101

REACTIONS (2)
  - MACULAR OEDEMA [None]
  - SCOTOMA [None]
